FAERS Safety Report 4376003-2 (Version None)
Quarter: 2004Q2

REPORT INFORMATION
  Report Type: 
  Country: None (occurrence: None)
  Receive Date: 20040609
  Receipt Date: 20040609
  Transmission Date: 20050107
  Serious: Yes (Other)
  Sender: FDA-Public Use
  Company Number: None

PATIENT
  Age: 17 Year
  Sex: Male
  Weight: 51.2565 kg

DRUGS (1)
  1. DORYX [Suspect]
     Indication: ACNE
     Dosage: PO AT BEDTIME
     Route: 048

REACTIONS (2)
  - ODYNOPHAGIA [None]
  - OESOPHAGITIS [None]
